FAERS Safety Report 5616440-9 (Version None)
Quarter: 2008Q1

REPORT INFORMATION
  Report Type: 
  Country: None (occurrence: None)
  Receive Date: 20080207
  Receipt Date: 20080128
  Transmission Date: 20080703
  Serious: Yes (Other)
  Sender: FDA-Public Use
  Company Number: US-ELI_LILLY_AND_COMPANY-US200802000283

PATIENT
  Sex: Female

DRUGS (5)
  1. EVISTA [Suspect]
     Dosage: 60 MG, UNK
     Route: 055
     Dates: end: 20080121
  2. TOPROL-XL [Concomitant]
     Dosage: UNK, 2/D
  3. MULTI-VITAMIN [Concomitant]
  4. GLUCOSAMINE [Concomitant]
  5. ALBUTEROL [Concomitant]

REACTIONS (1)
  - RENAL ARTERY OCCLUSION [None]
